FAERS Safety Report 15346527 (Version 2)
Quarter: 2018Q3

REPORT INFORMATION
  Report Type: Spontaneous
  Country: US (occurrence: US)
  Receive Date: 20180904
  Receipt Date: 20180914
  Transmission Date: 20181010
  Serious: Yes (Other)
  Sender: FDA-Public Use
  Company Number: US-009507513-1808USA007882

PATIENT
  Age: 22 Year
  Sex: Female
  Weight: 82.08 kg

DRUGS (2)
  1. NEXPLANON [Suspect]
     Active Substance: ETONOGESTREL
     Dosage: ROD IN ARM FOR 3 YEARS
     Route: 058
     Dates: start: 20180621, end: 20180720
  2. NEXPLANON [Suspect]
     Active Substance: ETONOGESTREL
     Indication: CONTRACEPTION
     Dosage: ROD IN ARM FOR 3 YEARS
     Route: 059
     Dates: start: 2015, end: 20180621

REACTIONS (2)
  - Cellulitis [Recovering/Resolving]
  - Device expulsion [Recovered/Resolved]

NARRATIVE: CASE EVENT DATE: 20180702
